FAERS Safety Report 9228928 (Version 2)
Quarter: 2013Q2

REPORT INFORMATION
  Report Type: Spontaneous
  Country: CH (occurrence: CH)
  Receive Date: 20130412
  Receipt Date: 20130412
  Transmission Date: 20140414
  Serious: Yes (Other)
  Sender: FDA-Public Use
  Company Number: PHHY2013CH020831

PATIENT
  Age: 30 Day
  Sex: Female
  Weight: 2.5 kg

DRUGS (1)
  1. AMOXICILLIN\CLAVULANATE POTASSIUM [Suspect]
     Indication: NEONATAL RESPIRATORY DISTRESS SYNDROME
     Dosage: 1 DF, DAILY
     Route: 048
     Dates: start: 20130204, end: 20130204

REACTIONS (2)
  - Accidental overdose [Recovered/Resolved]
  - Incorrect dose administered [Unknown]
